FAERS Safety Report 18851005 (Version 2)
Quarter: 2021Q1

REPORT INFORMATION
  Report Type: Other
  Country: GB (occurrence: GB)
  Receive Date: 20210205
  Receipt Date: 20210224
  Transmission Date: 20210420
  Serious: Yes (Death)
  Sender: FDA-Public Use
  Company Number: GB-CELLTRION INC.-2020GB019211

PATIENT

DRUGS (72)
  1. DALTEPARIN [Concomitant]
     Active Substance: DALTEPARIN
     Dosage: 18000 U
     Route: 058
     Dates: start: 20190701
  2. DALTEPARIN [Concomitant]
     Active Substance: DALTEPARIN
     Dosage: 5000 IU, QD
     Route: 058
     Dates: start: 20180623, end: 20180624
  3. DEXAMETHASONE. [Concomitant]
     Active Substance: DEXAMETHASONE
     Indication: URINARY INCONTINENCE
     Dosage: 4 MG, QD
     Route: 048
     Dates: start: 20190412
  4. GRANISETRON [Concomitant]
     Active Substance: GRANISETRON
     Indication: PRODUCT USED FOR UNKNOWN INDICATION
     Dosage: 1 MG, Q3W
     Route: 042
     Dates: start: 20190716
  5. IRON SUCROSE [Concomitant]
     Active Substance: IRON SUCROSE
     Indication: ANAEMIA
     Dosage: 200 MG, QD
     Route: 042
     Dates: start: 20200313, end: 20200326
  6. MORPHINE SULPHATE [Concomitant]
     Active Substance: MORPHINE SULFATE
     Dosage: 10 MG
     Route: 048
     Dates: start: 20191003, end: 20191003
  7. DALTEPARIN [Concomitant]
     Active Substance: DALTEPARIN
     Dosage: 15000 U
     Route: 058
     Dates: start: 20190628, end: 20190628
  8. DALTEPARIN [Concomitant]
     Active Substance: DALTEPARIN
     Dosage: 5000 IU, QD
     Route: 058
     Dates: start: 20200303, end: 20200331
  9. DEXAMETHASONE. [Concomitant]
     Active Substance: DEXAMETHASONE
     Indication: HEMIPARESIS
     Dosage: 2 MG, QD
     Route: 048
     Dates: start: 20190805
  10. DEXAMETHASONE. [Concomitant]
     Active Substance: DEXAMETHASONE
     Dosage: 4 MG
     Route: 048
     Dates: start: 20190412
  11. DEXAMETHASONE. [Concomitant]
     Active Substance: DEXAMETHASONE
     Dosage: 4 MG
     Route: 048
     Dates: start: 20190329
  12. DOCUSATE SODIUM. [Concomitant]
     Active Substance: DOCUSATE SODIUM
     Indication: CONSTIPATION
     Dosage: 100 MG 0.33 DAY
     Route: 048
     Dates: start: 20191003
  13. GENTAMICIN. [Concomitant]
     Active Substance: GENTAMICIN
     Indication: PRODUCT USED FOR UNKNOWN INDICATION
     Dosage: 120 MG
     Route: 042
     Dates: start: 20200310, end: 20200310
  14. PREGABALIN. [Concomitant]
     Active Substance: PREGABALIN
     Indication: PRODUCT USED FOR UNKNOWN INDICATION
     Dosage: 75 MG, BID
     Route: 048
     Dates: start: 20190930
  15. SENNA ALEXANDRINA [Concomitant]
     Active Substance: SENNA LEAF
     Dosage: 15 MG, QD
     Route: 048
     Dates: start: 20191001, end: 201910
  16. TRASTUZUMAB (UNKNOWN) [Suspect]
     Active Substance: TRASTUZUMAB
     Dosage: 200 MILLIGRAM, OTHER CHEMOTHERAPY
     Route: 042
     Dates: start: 20190716
  17. DOCETAXEL. [Suspect]
     Active Substance: DOCETAXEL
     Dosage: 200 MG
     Route: 042
     Dates: start: 20171120, end: 20180101
  18. TRASTUZUMAB EMTANSINE [Suspect]
     Active Substance: ADO-TRASTUZUMAB EMTANSINE
     Indication: BREAST CANCER
     Dosage: 260 MG
     Route: 042
     Dates: start: 20190814, end: 20190903
  19. DEXAMETHASONE. [Concomitant]
     Active Substance: DEXAMETHASONE
     Dosage: 2 MILLIGRAM
     Route: 042
     Dates: start: 20190716
  20. DEXAMETHASONE. [Concomitant]
     Active Substance: DEXAMETHASONE
     Dosage: 2 MG
     Route: 048
     Dates: start: 20190805
  21. DEXAMETHASONE. [Concomitant]
     Active Substance: DEXAMETHASONE
     Dosage: 8 MG
     Route: 042
     Dates: start: 20200310, end: 20200310
  22. IBUPROFEN. [Concomitant]
     Active Substance: IBUPROFEN
     Indication: PRODUCT USED FOR UNKNOWN INDICATION
     Dosage: 400 MG, BID
     Route: 048
     Dates: start: 20190930
  23. ORAMORPH SR SUSTAINED RELEASE [Concomitant]
     Active Substance: MORPHINE SULFATE
     Dosage: 5 MILLIGRAM
     Route: 048
     Dates: start: 201912, end: 20200104
  24. ZERODERM [Concomitant]
     Indication: ERYTHEMA
     Dosage: 1 MG, DAILY
     Route: 061
     Dates: start: 20181012
  25. ORAMORPH SR SUSTAINED RELEASE [Concomitant]
     Active Substance: MORPHINE SULFATE
     Indication: PRODUCT USED FOR UNKNOWN INDICATION
     Dosage: 10 MG
     Route: 048
     Dates: start: 20190929, end: 20191003
  26. MORPHINE SULPHATE [Concomitant]
     Active Substance: MORPHINE SULFATE
     Indication: PRODUCT USED FOR UNKNOWN INDICATION
     Dosage: 30 MG, BID
     Route: 048
     Dates: start: 20190930, end: 20191002
  27. OMEPRAZOLE. [Concomitant]
     Active Substance: OMEPRAZOLE
     Indication: PRODUCT USED FOR UNKNOWN INDICATION
     Dosage: 20 MG, QD
     Route: 048
     Dates: start: 20190329
  28. ORAMORPH SR SUSTAINED RELEASE [Concomitant]
     Active Substance: MORPHINE SULFATE
     Indication: PRODUCT USED FOR UNKNOWN INDICATION
     Dosage: 10 MG
     Route: 048
     Dates: start: 20190929, end: 20191003
  29. OXYCODONE [Concomitant]
     Active Substance: OXYCODONE
     Indication: PRODUCT USED FOR UNKNOWN INDICATION
     Dosage: 10 MG, BID
     Route: 048
     Dates: start: 20191003
  30. OXYCODONE [Concomitant]
     Active Substance: OXYCODONE
     Dosage: 2.5 MG
     Route: 048
     Dates: start: 20191003
  31. TAZOCIN [Concomitant]
     Active Substance: PIPERACILLIN SODIUM\TAZOBACTAM SODIUM
     Indication: PRODUCT USED FOR UNKNOWN INDICATION
     Dosage: 4.5 G, TID
     Route: 042
     Dates: start: 20191005, end: 20191007
  32. TRANEXAMIC ACID. [Concomitant]
     Active Substance: TRANEXAMIC ACID
     Indication: PRODUCT USED FOR UNKNOWN INDICATION
     Dosage: 1 G
     Route: 042
     Dates: start: 20200310, end: 20200310
  33. DENOSUMAB [Concomitant]
     Active Substance: DENOSUMAB
     Indication: PROPHYLAXIS
     Dosage: 120 MILLIGRAM, Q4WK
     Route: 058
     Dates: start: 20171020
  34. TRASTUZUMAB (UNKNOWN) [Suspect]
     Active Substance: TRASTUZUMAB
     Dosage: 515 MILLIGRAM, Q4WK
     Route: 042
     Dates: start: 20171211, end: 20190329
  35. TRASTUZUMAB EMTANSINE [Suspect]
     Active Substance: ADO-TRASTUZUMAB EMTANSINE
     Dosage: 300 MILLIGRAM, Q3WK
     Route: 042
     Dates: start: 20190716, end: 20190813
  36. DALTEPARIN [Concomitant]
     Active Substance: DALTEPARIN
     Dosage: 5000 INTERNATIONAL UNIT, 15000 U
     Route: 058
     Dates: start: 20190628, end: 20190628
  37. DEXAMETHASONE. [Concomitant]
     Active Substance: DEXAMETHASONE
     Dosage: 8 MILLIGRAM, Q3WK
     Route: 042
     Dates: start: 20190716, end: 20200310
  38. DEXAMETHASONE. [Concomitant]
     Active Substance: DEXAMETHASONE
     Dosage: 8 MG, QD
     Route: 048
     Dates: start: 20190329
  39. LEVOBUPIVACAINE [Concomitant]
     Active Substance: LEVOBUPIVACAINE
     Indication: PAIN IN EXTREMITY
     Dosage: 5 ML, QH
     Route: 058
     Dates: start: 20200304, end: 20200331
  40. OXYGEN. [Concomitant]
     Active Substance: OXYGEN
     Indication: PRODUCT USED FOR UNKNOWN INDICATION
     Dosage: RESPIRATORY (INHALATION)
     Route: 055
     Dates: start: 20190628, end: 20190701
  41. PERTUZUMAB. [Suspect]
     Active Substance: PERTUZUMAB
     Indication: BREAST CANCER
     Dosage: 840 MG LOADING DOSE
     Route: 042
     Dates: start: 20171120, end: 20171120
  42. PERTUZUMAB. [Suspect]
     Active Substance: PERTUZUMAB
     Dosage: 420 MILLIGRAM, Q3WK
     Route: 042
     Dates: start: 20171211, end: 20190329
  43. ADCAL D3 [Concomitant]
     Active Substance: CALCIUM CARBONATE\CHOLECALCIFEROL
     Indication: PROPHYLAXIS
     Dosage: 1 DOSAGE FORM, QD
     Route: 048
     Dates: start: 20171120
  44. DALTEPARIN [Concomitant]
     Active Substance: DALTEPARIN
     Dosage: 5000 IU, QD
     Route: 058
     Dates: start: 20180626, end: 20180628
  45. DEXAMETHASONE. [Concomitant]
     Active Substance: DEXAMETHASONE
     Indication: PAIN
     Dosage: 4 MG, BID
     Route: 048
     Dates: start: 20190329
  46. FENTANYL. [Concomitant]
     Active Substance: FENTANYL
     Indication: PRODUCT USED FOR UNKNOWN INDICATION
     Dosage: 50 MG
     Route: 062
     Dates: start: 201911, end: 20200504
  47. GLYCERINE [Concomitant]
     Active Substance: GLYCERIN
     Indication: CONSTIPATION
     Dosage: 4 G (RECTUM)
     Route: 065
     Dates: start: 20200315, end: 20200315
  48. MORPHINE SULPHATE [Concomitant]
     Active Substance: MORPHINE SULFATE
     Dosage: 10 MG, QD
     Route: 048
     Dates: start: 20191003, end: 20191003
  49. MORPHINE SULPHATE [Concomitant]
     Active Substance: MORPHINE SULFATE
     Dosage: 20 MG, BID
     Route: 048
     Dates: start: 20191002, end: 20191003
  50. SENNA ALEXANDRINA [Concomitant]
     Active Substance: SENNA LEAF
     Indication: CONSTIPATION
     Dosage: 1 MG
     Route: 048
     Dates: start: 20190629, end: 20190629
  51. TAZOCIN [Concomitant]
     Active Substance: PIPERACILLIN SODIUM\TAZOBACTAM SODIUM
     Dosage: 4.5 MG
     Route: 042
     Dates: start: 20191005, end: 20191007
  52. TRASTUZUMAB (UNKNOWN) [Suspect]
     Active Substance: TRASTUZUMAB
     Indication: BREAST CANCER
     Dosage: 693 MILLIGRAM (LOADING DOSE)
     Route: 042
     Dates: start: 20171120, end: 20171120
  53. TRASTUZUMAB (UNKNOWN) [Suspect]
     Active Substance: TRASTUZUMAB
     Dosage: 200 MILLIGRAM, OTHER CHEMOTHERAPY
     Route: 042
     Dates: start: 20190716
  54. DOCETAXEL. [Suspect]
     Active Substance: DOCETAXEL
     Indication: BREAST CANCER
     Dosage: 180 MILLIGRAM, Q3WK
     Route: 042
     Dates: start: 20180122
  55. TRASTUZUMAB EMTANSINE [Suspect]
     Active Substance: ADO-TRASTUZUMAB EMTANSINE
     Dosage: 200 MILLIGRAM, Q3WK
     Route: 042
     Dates: start: 20190904
  56. XGEVA [Suspect]
     Active Substance: DENOSUMAB
     Indication: PROPHYLAXIS
     Dosage: 120 MILLIGRAM, Q4WK
     Route: 058
     Dates: start: 20171020
  57. DALTEPARIN [Concomitant]
     Active Substance: DALTEPARIN
     Indication: PROPHYLAXIS
     Dosage: 15000 INTERNATIONAL UNIT
     Route: 058
     Dates: start: 20190802
  58. DIHYDROCODEINE [Concomitant]
     Active Substance: DIHYDROCODEINE
     Indication: PAIN IN EXTREMITY
     Dosage: 30 MG
     Route: 048
     Dates: start: 20200303, end: 20200331
  59. MACROGOL [Concomitant]
     Active Substance: POLYETHYLENE GLYCOLS
     Indication: CONSTIPATION
     Dosage: UNK (SACHET)
     Route: 048
     Dates: start: 20190630, end: 20190630
  60. MACROGOL [Concomitant]
     Active Substance: POLYETHYLENE GLYCOLS
     Dosage: UNK (SACHET)
     Route: 048
     Dates: start: 20191003, end: 201910
  61. MACROGOL [Concomitant]
     Active Substance: POLYETHYLENE GLYCOLS
     Dosage: UNK (SACHETS)
     Route: 048
     Dates: start: 20200303, end: 20200331
  62. METOCLOPRAMIDE. [Concomitant]
     Active Substance: METOCLOPRAMIDE
     Indication: PRODUCT USED FOR UNKNOWN INDICATION
     Dosage: 10 MG
     Route: 048
     Dates: start: 20190716
  63. PARACETAMOL [Concomitant]
     Active Substance: ACETAMINOPHEN
     Indication: PAIN IN EXTREMITY
     Dosage: 1 G, QID
     Route: 048
     Dates: start: 20190930
  64. BISACODYL. [Concomitant]
     Active Substance: BISACODYL
     Indication: CONSTIPATION
     Dosage: 10 MG
     Route: 054
     Dates: start: 20200315, end: 20200315
  65. DALTEPARIN [Concomitant]
     Active Substance: DALTEPARIN
     Dosage: 15000 IU, QD
     Route: 058
     Dates: start: 20190802
  66. DEXAMETHASONE. [Concomitant]
     Active Substance: DEXAMETHASONE
     Indication: AMNESIA
     Dosage: 8 MILLIGRAM, EVERY 3 WEEKS
     Route: 042
     Dates: start: 20190329
  67. LEVOFLOXACIN. [Concomitant]
     Active Substance: LEVOFLOXACIN
     Dosage: 500 MG, QD
     Route: 048
     Dates: start: 20191008, end: 20191014
  68. LORAZEPAM. [Concomitant]
     Active Substance: LORAZEPAM
     Indication: ANXIETY
     Dosage: 1 MG, QD
     Route: 048
     Dates: start: 20190629, end: 20190629
  69. MORPHINE SULPHATE [Concomitant]
     Active Substance: MORPHINE SULFATE
     Dosage: 30 MG
     Route: 048
     Dates: start: 20190930, end: 20191002
  70. MORPHINE SULPHATE [Concomitant]
     Active Substance: MORPHINE SULFATE
     Dosage: 20 MG
     Route: 048
     Dates: start: 20191002, end: 20191003
  71. PARACETAMOL [Concomitant]
     Active Substance: ACETAMINOPHEN
     Indication: PAIN IN EXTREMITY
     Dosage: 1 G
     Route: 048
     Dates: start: 20180624, end: 20180704
  72. SODIUM CITRATE. [Concomitant]
     Active Substance: SODIUM CITRATE
     Indication: CONSTIPATION
     Dosage: 450 MG, RECTUM
     Route: 065
     Dates: start: 20200315, end: 20200315

REACTIONS (3)
  - Off label use [Fatal]
  - Fatigue [Fatal]
  - Pneumonia [Fatal]

NARRATIVE: CASE EVENT DATE: 20171120
